FAERS Safety Report 19952867 (Version 1)
Quarter: 2021Q4

REPORT INFORMATION
  Report Type: Spontaneous
  Country: US (occurrence: US)
  Receive Date: 20211014
  Receipt Date: 20211014
  Transmission Date: 20220304
  Serious: Yes (Hospitalization, Other)
  Sender: FDA-Public Use
  Company Number: US-SA-SAC20211008000605

PATIENT
  Age: 91 Year
  Sex: Male

DRUGS (9)
  1. MULTAQ [Suspect]
     Active Substance: DRONEDARONE
     Dosage: 200 MG, BID
     Dates: start: 20190513
  2. MULTAQ [Suspect]
     Active Substance: DRONEDARONE
     Dosage: 400 MG, BID
  3. RIVAROXABAN [Suspect]
     Active Substance: RIVAROXABAN
     Indication: Atrial fibrillation
     Dosage: UNK
     Dates: start: 20190416
  4. RIVAROXABAN [Suspect]
     Active Substance: RIVAROXABAN
     Dosage: 200 MG
  5. ENTRESTO [Concomitant]
     Active Substance: SACUBITRIL\VALSARTAN
     Dosage: UNK
  6. VERAPAMIL [Concomitant]
     Active Substance: VERAPAMIL HYDROCHLORIDE
     Dosage: UNK
  7. METOPROLOL [Concomitant]
     Active Substance: METOPROLOL
     Dosage: UNK
  8. DILTIAZEM [Concomitant]
     Active Substance: DILTIAZEM
     Dosage: UNK
  9. PINDOLOL [Concomitant]
     Active Substance: PINDOLOL
     Dosage: UNK

REACTIONS (3)
  - Atrial fibrillation [Unknown]
  - Anaemia [Unknown]
  - Dizziness [Unknown]
